FAERS Safety Report 6706349-1 (Version None)
Quarter: 2010Q2

REPORT INFORMATION
  Report Type: 
  Country: None (occurrence: None)
  Receive Date: 20100503
  Receipt Date: 20100421
  Transmission Date: 20101027
  Serious: Yes (Hospitalization)
  Sender: FDA-Public Use
  Company Number: ES-ELI_LILLY_AND_COMPANY-ES201004005903

PATIENT
  Sex: Female
  Weight: 65 kg

DRUGS (5)
  1. FORTEO [Suspect]
     Indication: OSTEOPOROSIS
     Dosage: 20 UG, DAILY (1/D)
     Route: 058
     Dates: start: 20090627, end: 20100201
  2. EMCONCOR /00802601/ [Concomitant]
     Indication: ANGINA PECTORIS
     Dosage: 2.5 MG 1/12HOURS, OTHER
     Route: 048
     Dates: start: 20091201
  3. PLAVIX [Concomitant]
     Indication: ANGINA PECTORIS
     Dosage: 75 MG, DAILY (1/D)
     Route: 048
     Dates: start: 20091201
  4. ASPIRIN [Concomitant]
     Indication: ANGINA PECTORIS
     Dosage: 100 MG, DAILY (1/D)
     Route: 048
     Dates: start: 20091201
  5. RANITIDINA                         /00550802/ [Concomitant]
     Dosage: 150 MG 1/12HOURS, OTHER
     Route: 048
     Dates: start: 20091201

REACTIONS (2)
  - ANGINA PECTORIS [None]
  - CLOSTRIDIAL INFECTION [None]
